FAERS Safety Report 4921979-5 (Version None)
Quarter: 2006Q1

REPORT INFORMATION
  Report Type: 
  Country: None (occurrence: None)
  Receive Date: 20060223
  Receipt Date: 20060223
  Transmission Date: 20060701
  Serious: Yes (Hospitalization)
  Sender: FDA-Public Use
  Company Number: None

PATIENT
  Age: 81 Year
  Sex: Female

DRUGS (10)
  1. FLUOROURACIL [Suspect]
     Indication: COLON CANCER
  2. LEUCOVORIN CALCIUM [Suspect]
  3. COREG [Concomitant]
  4. ALLEGRA [Concomitant]
  5. ALDACTONE [Concomitant]
  6. ASPIRIN [Concomitant]
  7. LASIX [Concomitant]
  8. ZANTAC [Concomitant]
  9. EVISTA [Concomitant]
  10. DARVOCET [Concomitant]

REACTIONS (3)
  - DIARRHOEA [None]
  - NAUSEA [None]
  - VOMITING [None]
